FAERS Safety Report 4356531-6 (Version None)
Quarter: 2004Q2

REPORT INFORMATION
  Report Type: 
  Country: None (occurrence: None)
  Receive Date: 20040507
  Receipt Date: 20040429
  Transmission Date: 20050107
  Serious: Yes (Hospitalization)
  Sender: FDA-Public Use
  Company Number: OSCN-PR-0404S-0081

PATIENT
  Age: 53 Year
  Sex: Female
  Weight: 81.6475 kg

DRUGS (6)
  1. OMNISCAN [Suspect]
     Indication: PREOPERATIVE CARE
     Dosage: 15 ML, SINGLE DOSE, I.T.
     Route: 037
     Dates: start: 20040415, end: 20040415
  2. MIDAZOLAM HCL (VERSED) [Concomitant]
  3. BEXTRA [Concomitant]
  4. PAROXETINE HCL (PAXIL) [Concomitant]
  5. NEURONTIN [Concomitant]
  6. HYDROCODONE (LORCET) [Concomitant]

REACTIONS (12)
  - AGGRESSION [None]
  - AGITATION [None]
  - AMNESIA [None]
  - APHONIA [None]
  - ASTHENIA [None]
  - CONFUSIONAL STATE [None]
  - CONVULSION [None]
  - DEAFNESS TRANSITORY [None]
  - DRUG INEFFECTIVE [None]
  - HALLUCINATION [None]
  - PNEUMONIA [None]
  - PYREXIA [None]
